FAERS Safety Report 5334136-8 (Version None)
Quarter: 2007Q2

REPORT INFORMATION
  Report Type: 
  Country: None (occurrence: None)
  Receive Date: 20070308
  Receipt Date: 20061121
  Transmission Date: 20071010
  Serious: No
  Sender: FDA-Public Use
  Company Number: 2006-BP-05194BP

PATIENT
  Age: 56 Year
  Sex: Male

DRUGS (6)
  1. SPIRIVA [Suspect]
     Indication: CHRONIC OBSTRUCTIVE PULMONARY DISEASE
     Dosage: 18 MCG (18 MCG, 1 IN 1 D), IH
     Route: 055
  2. ALBUTEROL [Concomitant]
  3. MARINOL [Concomitant]
  4. SPIRONOLACTONE [Concomitant]
  5. MULTI-VITAMINS [Concomitant]
  6. PREVACID [Concomitant]

REACTIONS (3)
  - AGEUSIA [None]
  - DRUG INEFFECTIVE [None]
  - DYSPNOEA [None]
